FAERS Safety Report 9222263 (Version 1)
Quarter: 2013Q2

REPORT INFORMATION
  Report Type: Report from Study
  Country: US (occurrence: US)
  Receive Date: 20130410
  Receipt Date: 20130410
  Transmission Date: 20140414
  Serious: Yes (Hospitalization)
  Sender: FDA-Public Use
  Company Number: US-PFIZER INC-2013108992

PATIENT
  Age: 40 Year
  Sex: Female
  Weight: 65.9 kg

DRUGS (1)
  1. SUNITINIB MALATE [Suspect]
     Indication: THYMOMA
     Dosage: 50 MG ONCE DAILY ON DAYS 1-28 OF 6-WEEK-CYCLE
     Route: 048
     Dates: start: 20130113

REACTIONS (1)
  - Febrile neutropenia [Not Recovered/Not Resolved]
